FAERS Safety Report 17407152 (Version 1)
Quarter: 2020Q1

REPORT INFORMATION
  Report Type: Spontaneous
  Country: US (occurrence: US)
  Receive Date: 20200211
  Receipt Date: 20200211
  Transmission Date: 20200409
  Serious: No
  Sender: FDA-Public Use
  Company Number: None

PATIENT
  Age: 54 Year
  Sex: Female
  Weight: 48.6 kg

DRUGS (1)
  1. TAMIFLU - GENERIC OSELTAMIVIR PHOSPHATE 75 MG CAPSULES [Suspect]
     Active Substance: OSELTAMIVIR PHOSPHATE
     Indication: INFLUENZA
     Dosage: ?          QUANTITY:1 CAPSULE(S);?
     Route: 048
     Dates: start: 20200202, end: 20200205

REACTIONS (9)
  - Fatigue [None]
  - Food intolerance [None]
  - Nausea [None]
  - Diarrhoea [None]
  - Decreased appetite [None]
  - Asthenia [None]
  - Loss of personal independence in daily activities [None]
  - Dizziness [None]
  - Dysstasia [None]

NARRATIVE: CASE EVENT DATE: 20200205
